FAERS Safety Report 8997915 (Version 4)
Quarter: 2013Q3

REPORT INFORMATION
  Report Type: Report from Study
  Country: US (occurrence: US)
  Receive Date: 20130104
  Receipt Date: 20130919
  Transmission Date: 20140515
  Serious: Yes (Hospitalization)
  Sender: FDA-Public Use
  Company Number: US-ROCHE-1173603

PATIENT
  Age: 54 Year
  Sex: Male
  Weight: 75.4 kg

DRUGS (3)
  1. RIBAVIRIN [Suspect]
     Indication: HEPATITIS C
     Dosage: 1000 MG/S
     Route: 048
     Dates: start: 20120111
  2. PEG-INTERFERON ALFA 2A [Suspect]
     Indication: HEPATITIS C
     Dosage: 180MG/S
     Route: 065
     Dates: start: 20120111
  3. PLACEBO [Suspect]
     Indication: HEPATITIS C
     Route: 048
     Dates: end: 20121217

REACTIONS (1)
  - Syncope [Recovered/Resolved]
